FAERS Safety Report 4943987-0 (Version None)
Quarter: 2006Q2

REPORT INFORMATION
  Report Type: 
  Country: None (occurrence: None)
  Receive Date: 20060313
  Receipt Date: 20060313
  Transmission Date: 20061013
  Serious: Yes (Hospitalization)
  Sender: FDA-Public Use
  Company Number: None

PATIENT
  Sex: Male
  Weight: 48.0813 kg

DRUGS (5)
  1. CARBOPLATIN [Suspect]
     Indication: LUNG ADENOCARCINOMA
     Dosage: 890 MG
     Dates: start: 20060301, end: 20060301
  2. RITUXIMAB [Suspect]
     Dosage: 880 MG
     Dates: start: 20060301, end: 20060301
  3. ALIMTA [Suspect]
     Dosage: 1100 MG
     Dates: start: 20060301, end: 20060301
  4. DEXAMETHASONE TAB [Concomitant]
  5. ERBITUX [Suspect]

REACTIONS (2)
  - DIVERTICULAR PERFORATION [None]
  - DIVERTICULUM [None]
